FAERS Safety Report 5201608-6 (Version None)
Quarter: 2007Q1

REPORT INFORMATION
  Report Type: 
  Country: None (occurrence: None)
  Receive Date: 20070104
  Receipt Date: 20061229
  Transmission Date: 20070707
  Serious: Yes (Death)
  Sender: FDA-Public Use
  Company Number: 114-C5013-06121297

PATIENT
  Age: 61 Year
  Sex: Male

DRUGS (8)
  1. CC-5012(LENALIDOMIDE) (CAPSULES) [Suspect]
     Indication: MULTIPLE MYELOMA
     Dosage: SEE IMAGE
     Route: 048
     Dates: start: 20061023, end: 20061031
  2. CC-5012(LENALIDOMIDE) (CAPSULES) [Suspect]
     Indication: MULTIPLE MYELOMA
     Dosage: SEE IMAGE
     Route: 048
     Dates: start: 20061101
  3. DEXAMETHASONE TAB [Suspect]
     Indication: MULTIPLE MYELOMA
     Dosage: 4 MG
     Dates: start: 20060401
  4. METFORMIN HCL [Concomitant]
  5. SALBUTAMOL (SALBUTAMOL) [Concomitant]
  6. DURAGESIC-100 [Concomitant]
  7. ARANESP [Concomitant]
  8. ALFUZOSIN (ALFUZOSIN) [Concomitant]

REACTIONS (1)
  - DEATH [None]
